FAERS Safety Report 4591801-8 (Version None)
Quarter: 2005Q1

REPORT INFORMATION
  Report Type: 
  Country: None (occurrence: None)
  Receive Date: 20050222
  Receipt Date: 20050207
  Transmission Date: 20050727
  Serious: Yes (Life-Threatening, Hospitalization)
  Sender: FDA-Public Use
  Company Number: 200410691BYL

PATIENT
  Age: 82 Year
  Sex: Female
  Weight: 56 kg

DRUGS (6)
  1. ADALAT [Suspect]
     Indication: HYPERTENSION
     Dosage: 40 MG, BID, ORAL
     Route: 048
     Dates: start: 20041022, end: 20041222
  2. DIOVAN [Concomitant]
  3. LASIX [Concomitant]
  4. CARDENALIN [Concomitant]
  5. PENFILL R [Concomitant]
  6. AMLODIN [Concomitant]

REACTIONS (7)
  - ANGIONEUROTIC OEDEMA [None]
  - BRAIN NATRIURETIC PEPTIDE INCREASED [None]
  - CARDIAC FAILURE CONGESTIVE [None]
  - OEDEMA PERIPHERAL [None]
  - PAIN IN EXTREMITY [None]
  - PLEURAL EFFUSION [None]
  - PULMONARY CONGESTION [None]
